FAERS Safety Report 19115740 (Version 1)
Quarter: 2021Q2

REPORT INFORMATION
  Report Type: Spontaneous
  Country: US (occurrence: US)
  Receive Date: 20210409
  Receipt Date: 20210409
  Transmission Date: 20210717
  Serious: No
  Sender: FDA-Public Use
  Company Number: US-MYLANLABS-2021M1019823

PATIENT
  Sex: Female

DRUGS (2)
  1. DENAVIR [Suspect]
     Active Substance: PENCICLOVIR
     Indication: GLOSSODYNIA
  2. DENAVIR [Suspect]
     Active Substance: PENCICLOVIR
     Indication: STOMATITIS
     Dosage: UNK UNK, PRN
     Route: 048

REACTIONS (2)
  - Lip haemorrhage [Not Recovered/Not Resolved]
  - Lip exfoliation [Not Recovered/Not Resolved]
